FAERS Safety Report 6093080-1 (Version None)
Quarter: 2009Q1

REPORT INFORMATION
  Report Type: 
  Country: None (occurrence: None)
  Receive Date: 20090224
  Receipt Date: 20090224
  Transmission Date: 20090719
  Serious: No
  Sender: FDA-Public Use
  Company Number: None

PATIENT
  Sex: Female
  Weight: 57.27 kg

DRUGS (15)
  1. NORTRIPTYLINE HCL [Suspect]
     Dosage: 10MG CAPSULE 30 MG QHS ORAL
     Route: 048
     Dates: start: 20090128, end: 20090224
  2. ALBUTEROL [Concomitant]
  3. AMOXICILLIN [Concomitant]
  4. BIFIDOBACTERIA [Concomitant]
  5. CALCIUM CARBONATE [Concomitant]
  6. CYANOCBALAMIN [Concomitant]
  7. DEXAMETHASONE [Concomitant]
  8. FOSAMAX [Concomitant]
  9. LEVIN/SL [Concomitant]
  10. LIDOCAINE [Concomitant]
  11. ROBITUSSIN WITH CODEINE [Concomitant]
  12. UNITHROID [Concomitant]
  13. VALIUM [Concomitant]
  14. VIT B 12 INJ. [Concomitant]
  15. VIVELLE-DOT [Concomitant]

REACTIONS (1)
  - AFFECT LABILITY [None]
